FAERS Safety Report 23994323 (Version 2)
Quarter: 2024Q2

REPORT INFORMATION
  Report Type: Report from Study
  Country: JP (occurrence: JP)
  Receive Date: 20240620
  Receipt Date: 20240628
  Transmission Date: 20240716
  Serious: Yes (Other)
  Sender: FDA-Public Use
  Company Number: JP-MYLANLABS-2024M1055522

PATIENT
  Age: 78 Year
  Sex: Female
  Weight: 49 kg

DRUGS (9)
  1. CELECOXIB [Suspect]
     Active Substance: CELECOXIB
     Indication: Rheumatoid arthritis
     Dosage: 100 MILLIGRAM, QD
     Route: 048
     Dates: end: 20210708
  2. FILGOTINIB [Suspect]
     Active Substance: FILGOTINIB
     Indication: Rheumatoid arthritis
     Dosage: 100 MILLIGRAM, QD
     Route: 048
     Dates: start: 20210522, end: 20210527
  3. FILGOTINIB [Suspect]
     Active Substance: FILGOTINIB
     Dosage: 100 MILLIGRAM, QD (ONCE DAILY)
     Route: 048
     Dates: start: 20210624, end: 20210721
  4. FILGOTINIB [Suspect]
     Active Substance: FILGOTINIB
     Indication: Rheumatoid arthritis
     Dosage: 100 MILLIGRAM, QD
     Route: 048
     Dates: start: 20210522
  5. KEVZARA [Concomitant]
     Active Substance: SARILUMAB
     Dosage: UNK
     Route: 065
     Dates: end: 20210521
  6. KEVZARA [Concomitant]
     Active Substance: SARILUMAB
     Dosage: UNK
     Route: 065
     Dates: start: 202108
  7. GASTER [Concomitant]
     Active Substance: FAMOTIDINE
     Dosage: UNK
     Route: 065
  8. Comirnaty [Concomitant]
     Dosage: UNK
     Route: 065
     Dates: start: 20210528, end: 20210528
  9. KEVZARA [Concomitant]
     Active Substance: SARILUMAB
     Dosage: 200 MILLIGRAM
     Route: 058
     Dates: start: 20210720

REACTIONS (2)
  - Rheumatoid arthritis [Recovered/Resolved]
  - Therapeutic response decreased [Recovered/Resolved]

NARRATIVE: CASE EVENT DATE: 20210701
